FAERS Safety Report 9522138 (Version 1)
Quarter: 2013Q3

REPORT INFORMATION
  Report Type: Spontaneous
  Country: US (occurrence: US)
  Receive Date: 20130913
  Receipt Date: 20130913
  Transmission Date: 20140515
  Serious: Yes (Other)
  Sender: FDA-Public Use
  Company Number: US-PFIZER INC-2013258600

PATIENT
  Age: 52 Year
  Sex: Male
  Weight: 70.3 kg

DRUGS (4)
  1. GLUCOTROL XL [Suspect]
     Indication: BLOOD GLUCOSE INCREASED
     Dosage: 10 MG, 1X/DAY
     Route: 048
     Dates: start: 2011
  2. ALDACTONE [Suspect]
     Dosage: 25 MG, 1X/DAY
     Route: 048
     Dates: start: 2011
  3. AMLODIPINE [Concomitant]
     Indication: HYPERTENSION
     Dosage: 5 MG, 1X/DAY
  4. ROSUVASTATIN [Concomitant]
     Indication: BLOOD CHOLESTEROL INCREASED
     Dosage: 10 MG, 1X/DAY

REACTIONS (2)
  - Ocular vascular disorder [Recovering/Resolving]
  - Visual impairment [Recovering/Resolving]
